FAERS Safety Report 12110699 (Version 1)
Quarter: 2016Q1

REPORT INFORMATION
  Report Type: Spontaneous
  Country: US (occurrence: US)
  Receive Date: 20160224
  Receipt Date: 20160224
  Transmission Date: 20160526
  Serious: No
  Sender: FDA-Public Use
  Company Number: US-JAZZ-2015-US-002516

PATIENT
  Sex: Female

DRUGS (2)
  1. PRIALT [Suspect]
     Active Substance: ZICONOTIDE ACETATE
     Indication: PAIN
     Dosage: UNK ?G, QH
     Route: 037
     Dates: start: 20141007, end: 201412
  2. PRIALT [Suspect]
     Active Substance: ZICONOTIDE ACETATE
     Indication: PROCTALGIA

REACTIONS (3)
  - Alopecia [Unknown]
  - Delusion [Unknown]
  - Onychoclasis [Unknown]

NARRATIVE: CASE EVENT DATE: 2014
